FAERS Safety Report 7888036-X (Version None)
Quarter: 2011Q4

REPORT INFORMATION
  Report Type: 
  Country: None (occurrence: None)
  Receive Date: 20111103
  Receipt Date: 20111101
  Transmission Date: 20120403
  Serious: Yes (Death, Hospitalization, Disabling)
  Sender: FDA-Public Use
  Company Number: US-JNJFOC-20110809715

PATIENT
  Sex: Male
  Weight: 86.64 kg

DRUGS (6)
  1. ZOMETA [Concomitant]
     Indication: METASTASES TO BONE
     Route: 065
     Dates: start: 20110923
  2. TRELSTAR [Concomitant]
     Indication: PROSTATE CANCER METASTATIC
     Route: 065
     Dates: end: 20110729
  3. TAXOTERE [Concomitant]
     Route: 065
  4. ZYTIGA [Suspect]
     Indication: PROSTATE CANCER METASTATIC
     Route: 048
     Dates: start: 20110712, end: 20110819
  5. PREDNISONE [Concomitant]
     Route: 065
  6. KETOCONAZOLE [Concomitant]
     Route: 065

REACTIONS (3)
  - MUSCULOSKELETAL DISCOMFORT [None]
  - DYSPHAGIA [None]
  - DISEASE PROGRESSION [None]
